FAERS Safety Report 9236651 (Version 1)
Quarter: 2013Q2

REPORT INFORMATION
  Report Type: Report from Study
  Country: GB (occurrence: GB)
  Receive Date: 20130417
  Receipt Date: 20130417
  Transmission Date: 20140414
  Serious: Yes (Hospitalization)
  Sender: FDA-Public Use
  Company Number: GB-ROCHE-1214477

PATIENT
  Sex: Female
  Weight: 95 kg

DRUGS (2)
  1. RITUXIMAB [Suspect]
     Indication: RHEUMATOID ARTHRITIS
     Dosage: DATE OF LAST DOSE PRIOR TO SAE 15/NOV/2012
     Route: 065
     Dates: start: 20090317
  2. AZATHIOPRINE [Concomitant]
     Route: 065

REACTIONS (2)
  - Pulmonary hypertension [Unknown]
  - Pulmonary embolism [Unknown]
